FAERS Safety Report 8165285-7 (Version None)
Quarter: 2012Q1

REPORT INFORMATION
  Report Type: 
  Country: None (occurrence: None)
  Receive Date: 20120227
  Receipt Date: 20120220
  Transmission Date: 20120608
  Serious: Yes (Hospitalization, Other)
  Sender: FDA-Public Use
  Company Number: US-TEVA-323753USA

PATIENT
  Age: 68 Year
  Sex: Male

DRUGS (5)
  1. ENTACAPONE [Concomitant]
     Indication: PARKINSON'S DISEASE
  2. PACLITAXEL [Suspect]
     Indication: LARYNGEAL CANCER STAGE III
     Dosage: WEEKLY PACLITAXEL INFUSIONS AT A DOSE OF ABOUT 45 MG/M2, PLANNED FOR 6 CYCLES
  3. CARBIDOPA + LEVODOPA [Concomitant]
     Indication: PARKINSON'S DISEASE
  4. CARBOPLATIN [Concomitant]
     Indication: LARYNGEAL CANCER STAGE III
     Dosage: AUC OF 1.5, PLANNED WEEKLY FOR 6 CYCLES
  5. PRAMIPEXOLE DIHYCHLLORIDE [Concomitant]
     Indication: PARKINSON'S DISEASE

REACTIONS (7)
  - ACUTE PSYCHOSIS [None]
  - TREMOR [None]
  - HALLUCINATION, VISUAL [None]
  - CONFUSIONAL STATE [None]
  - MENTAL STATUS CHANGES [None]
  - MUSCULOSKELETAL STIFFNESS [None]
  - ENCEPHALOPATHY [None]
